FAERS Safety Report 12585023 (Version 1)
Quarter: 2016Q3

REPORT INFORMATION
  Report Type: Spontaneous
  Country: ZA (occurrence: ZA)
  Receive Date: 20160723
  Receipt Date: 20160723
  Transmission Date: 20161109
  Serious: Yes (Other)
  Sender: FDA-Public Use
  Company Number: ZA-009507513-1607ZAF008513

PATIENT

DRUGS (1)
  1. IMPLANON [Suspect]
     Active Substance: ETONOGESTREL

REACTIONS (4)
  - Device embolisation [Unknown]
  - Product use issue [Unknown]
  - Device dislocation [Unknown]
  - Device deployment issue [Unknown]
